FAERS Safety Report 6849493-0 (Version None)
Quarter: 2010Q3

REPORT INFORMATION
  Report Type: 
  Country: None (occurrence: None)
  Receive Date: 20100716
  Receipt Date: 20071110
  Transmission Date: 20110219
  Serious: No
  Sender: FDA-Public Use
  Company Number: US-PFIZER INC-2007082929

PATIENT
  Sex: Female
  Weight: 110.5 kg

DRUGS (1)
  1. CHANTIX [Suspect]
     Indication: SMOKING CESSATION THERAPY
     Route: 048
     Dates: start: 20070702, end: 20070922

REACTIONS (3)
  - BLOOD PARATHYROID HORMONE INCREASED [None]
  - LOW DENSITY LIPOPROTEIN INCREASED [None]
  - VITAMIN D DECREASED [None]
